FAERS Safety Report 8248762-X (Version None)
Quarter: 2012Q1

REPORT INFORMATION
  Report Type: 
  Country: None (occurrence: None)
  Receive Date: 20120331
  Receipt Date: 20120327
  Transmission Date: 20120608
  Serious: Yes (Other)
  Sender: FDA-Public Use
  Company Number: PHFR2012GB001944

PATIENT
  Age: 70 Year
  Sex: Female

DRUGS (1)
  1. VALSARTAN [Suspect]
     Dosage: 160 MG,

REACTIONS (3)
  - POLYP [None]
  - ABDOMINAL PAIN [None]
  - GASTRITIS [None]
